FAERS Safety Report 5689453-9 (Version None)
Quarter: 2008Q1

REPORT INFORMATION
  Report Type: 
  Country: None (occurrence: None)
  Receive Date: 20080331
  Receipt Date: 20080325
  Transmission Date: 20080703
  Serious: Yes (Death, Hospitalization, Other)
  Sender: FDA-Public Use
  Company Number: NL-WYE-G00558407

PATIENT
  Sex: Female
  Weight: 53 kg

DRUGS (1)
  1. EFFEXOR XR [Suspect]

REACTIONS (3)
  - COLON CANCER [None]
  - GASTRIC CANCER [None]
  - WEIGHT DECREASED [None]
